FAERS Safety Report 10517454 (Version 1)
Quarter: 2014Q4

REPORT INFORMATION
  Report Type: Spontaneous
  Country: CH (occurrence: CH)
  Receive Date: 20141014
  Receipt Date: 20141014
  Transmission Date: 20150528
  Serious: Yes (Hospitalization)
  Sender: FDA-Public Use
  Company Number: CH-ABBVIE-14P-151-1294889-00

PATIENT
  Age: 10 Year
  Sex: Female
  Weight: 35 kg

DRUGS (3)
  1. LUCRIN DEPOT [Suspect]
     Active Substance: LEUPROLIDE ACETATE
     Indication: PRECOCIOUS PUBERTY
     Route: 030
     Dates: start: 20130704, end: 20140228
  2. LUCRIN DEPOT [Suspect]
     Active Substance: LEUPROLIDE ACETATE
     Route: 065
     Dates: start: 20140606
  3. DECAPEPTYL [Suspect]
     Active Substance: TRIPTORELIN ACETATE
     Indication: PRECOCIOUS PUBERTY
     Route: 058
     Dates: start: 20140509, end: 20140509

REACTIONS (13)
  - Injection site nodule [Unknown]
  - Injection site pain [Recovering/Resolving]
  - Injection site nodule [Recovering/Resolving]
  - Injection site nodule [Unknown]
  - Injection site pain [Unknown]
  - Injection site abscess sterile [Recovered/Resolved]
  - Injection site pain [Unknown]
  - Injection site abscess sterile [Recovered/Resolved]
  - Injection site pain [Unknown]
  - Injection site abscess sterile [Recovering/Resolving]
  - Injection site pain [Unknown]
  - Injection site nodule [Unknown]
  - Injection site nodule [Unknown]

NARRATIVE: CASE EVENT DATE: 20130704
